FAERS Safety Report 11748153 (Version 1)
Quarter: 2015Q4

REPORT INFORMATION
  Report Type: Report from Study
  Country: US (occurrence: None)
  Receive Date: 20151117
  Receipt Date: 20151117
  Transmission Date: 20160304
  Serious: Yes (Other)
  Sender: FDA-Public Use
  Company Number: US-MDT-ADR-2015-02172

PATIENT
  Age: 59 Year
  Sex: Male

DRUGS (2)
  1. COMPOUNDED BACLOFEN INTRATHECAL 800 MCG/ML [Suspect]
     Active Substance: BACLOFEN
     Indication: PAIN
     Dosage: 579.45 MCG/DAY
  2. MORPHINE INTRATHECAL 10 MG/ML [Suspect]
     Active Substance: MORPHINE
     Indication: PAIN
     Dosage: 7.243 MG/DAY

REACTIONS (1)
  - Drug withdrawal syndrome [None]
